FAERS Safety Report 16618250 (Version 1)
Quarter: 2019Q3

REPORT INFORMATION
  Report Type: Spontaneous
  Country: US (occurrence: US)
  Receive Date: 20190723
  Receipt Date: 20190723
  Transmission Date: 20191004
  Serious: No
  Sender: FDA-Public Use
  Company Number: US-IMPAX LABORATORIES, LLC-2018-IPXL-02383

PATIENT
  Sex: Female

DRUGS (1)
  1. ADRENACLICK [Suspect]
     Active Substance: EPINEPHRINE
     Indication: HYPERSENSITIVITY
     Dosage: 0.3 MG, SINGLE INJECTION
     Route: 030
     Dates: start: 20180708, end: 20180708

REACTIONS (1)
  - Therapeutic response decreased [Unknown]
